FAERS Safety Report 9042874 (Version 1)
Quarter: 2013Q1

REPORT INFORMATION
  Report Type: Spontaneous
  Country: US (occurrence: US)
  Receive Date: 20130129
  Receipt Date: 20130129
  Transmission Date: 20140127
  Serious: Yes (Other)
  Sender: FDA-Public Use
  Company Number: US-ABBOTT-12P-163-0912001-00

PATIENT
  Age: 56 None
  Sex: Female

DRUGS (14)
  1. HUMIRA 40 MG/ 0.8 ML PRE-FILLED SYRINGE [Suspect]
     Indication: RHEUMATOID ARTHRITIS
     Route: 058
     Dates: start: 2007, end: 201112
  2. HUMIRA 40 MG/ 0.8 ML PRE-FILLED SYRINGE [Suspect]
     Route: 058
     Dates: start: 20120228
  3. NUVIGIL [Concomitant]
     Indication: CHRONIC FATIGUE SYNDROME
  4. BENICAR HCT [Concomitant]
     Indication: HYPERTENSION
  5. CLONAZEPAM [Concomitant]
     Indication: ANXIETY
  6. LYRICA [Concomitant]
     Indication: FIBROMYALGIA
  7. LEVOTHYROXINE [Concomitant]
     Indication: HYPOTHYROIDISM
  8. HYDROCODONE [Concomitant]
     Indication: PAIN
  9. FOLIC ACID [Concomitant]
     Indication: FIBROMYALGIA
  10. VITAMIN B COMPLEX [Concomitant]
     Indication: FIBROMYALGIA
  11. VITAMIN B6 [Concomitant]
     Indication: FIBROMYALGIA
  12. VITAMIN B12 [Concomitant]
     Indication: FIBROMYALGIA
  13. CYMBALTA [Concomitant]
     Indication: FIBROMYALGIA
  14. CYMBALTA [Concomitant]
     Indication: DEPRESSION

REACTIONS (10)
  - Back pain [Not Recovered/Not Resolved]
  - Nausea [Not Recovered/Not Resolved]
  - Pain [Not Recovered/Not Resolved]
  - Headache [Not Recovered/Not Resolved]
  - Night sweats [Not Recovered/Not Resolved]
  - Pyrexia [Not Recovered/Not Resolved]
  - Aphthous stomatitis [Not Recovered/Not Resolved]
  - Aphthous stomatitis [Recovered/Resolved]
  - Aphthous stomatitis [Recovering/Resolving]
  - Herpes simplex [Unknown]
